FAERS Safety Report 24870958 (Version 3)
Quarter: 2025Q2

REPORT INFORMATION
  Report Type: Spontaneous
  Country: JP (occurrence: JP)
  Receive Date: 20250121
  Receipt Date: 20250407
  Transmission Date: 20250717
  Serious: Yes (Hospitalization, Other)
  Sender: ASTELLAS
  Company Number: JP-ASTELLAS-2025-AER-002044

PATIENT
  Age: 42 Year
  Sex: Male

DRUGS (23)
  1. XOSPATA [Suspect]
     Active Substance: GILTERITINIB
     Indication: Acute myeloid leukaemia recurrent
     Route: 048
  2. XOSPATA [Suspect]
     Active Substance: GILTERITINIB
     Indication: Acute myeloid leukaemia refractory
  3. PROGRAF [Suspect]
     Active Substance: TACROLIMUS
     Indication: Prophylaxis against graft versus host disease
     Route: 048
  4. QUIZARTINIB [Suspect]
     Active Substance: QUIZARTINIB
     Indication: Acute myeloid leukaemia recurrent
     Dosage: MAINTENANCE THERAPY
     Route: 048
  5. QUIZARTINIB [Suspect]
     Active Substance: QUIZARTINIB
     Route: 048
  6. QUIZARTINIB [Suspect]
     Active Substance: QUIZARTINIB
     Route: 048
  7. QUIZARTINIB [Suspect]
     Active Substance: QUIZARTINIB
     Route: 048
  8. IDR [Concomitant]
     Indication: Acute myeloid leukaemia recurrent
     Route: 065
  9. CYTARABINE [Concomitant]
     Active Substance: CYTARABINE
     Indication: Acute myeloid leukaemia recurrent
     Route: 065
  10. INFLUENZA VIRUS VACCINE [Concomitant]
     Active Substance: INFLUENZA VIRUS VACCINE
     Indication: Bone marrow conditioning regimen
     Route: 065
  11. Bu [Concomitant]
     Indication: Bone marrow conditioning regimen
     Route: 065
  12. PTCy [Concomitant]
     Indication: Prophylaxis against graft versus host disease
     Route: 065
  13. MYCOPHENOLATE MOFETIL [Concomitant]
     Active Substance: MYCOPHENOLATE MOFETIL
     Indication: Prophylaxis against graft versus host disease
     Route: 065
  14. mPSL [Concomitant]
     Indication: Acute graft versus host disease in skin
     Route: 065
  15. mPSL [Concomitant]
     Route: 065
  16. PSL [Concomitant]
     Indication: Acute graft versus host disease in skin
     Route: 065
  17. PSL [Concomitant]
     Route: 065
  18. PSL [Concomitant]
     Route: 065
  19. PSL [Concomitant]
     Route: 065
  20. PSL [Concomitant]
     Route: 065
  21. PSL [Concomitant]
     Route: 065
  22. PSL [Concomitant]
     Route: 065
  23. PSL [Concomitant]
     Route: 065

REACTIONS (6)
  - Bacteraemia [Recovered/Resolved]
  - Acute myeloid leukaemia recurrent [Recovered/Resolved]
  - Acute graft versus host disease in skin [Recovered/Resolved]
  - Platelet count decreased [Recovered/Resolved]
  - Therapy non-responder [Unknown]
  - Drug ineffective [Unknown]
